FAERS Safety Report 19417691 (Version 1)
Quarter: 2021Q2

REPORT INFORMATION
  Report Type: Spontaneous
  Country: SE (occurrence: SE)
  Receive Date: 20210615
  Receipt Date: 20210615
  Transmission Date: 20210717
  Serious: Yes (Hospitalization)
  Sender: FDA-Public Use
  Company Number: SE-ACCORD-228077

PATIENT
  Age: 57 Year
  Sex: Female
  Weight: 160 kg

DRUGS (7)
  1. FULTIUM [Concomitant]
     Active Substance: CHOLECALCIFEROL
     Route: 048
  2. FURIX [Concomitant]
     Route: 048
  3. ESOMEPRAZOL KRKA [Concomitant]
     Route: 048
  4. COMIRNATY [Suspect]
     Active Substance: TOZINAMERAN
     Indication: PRODUCT USED FOR UNKNOWN INDICATION
     Dates: start: 20210307
  5. ETORICOXIB KRKA [Concomitant]
     Route: 048
  6. ALLOPURINOL ACCORD [Suspect]
     Active Substance: ALLOPURINOL
     Indication: PRODUCT USED FOR UNKNOWN INDICATION
     Dosage: 1?3 TABLT 1 TIME PER DAY
     Route: 048
     Dates: start: 20210120, end: 20210404
  7. NEURONTIN [Concomitant]
     Active Substance: GABAPENTIN
     Route: 048

REACTIONS (3)
  - Prerenal failure [Recovering/Resolving]
  - Swelling face [Recovering/Resolving]
  - Rash erythematous [Recovering/Resolving]

NARRATIVE: CASE EVENT DATE: 20210307
